FAERS Safety Report 17684559 (Version 1)
Quarter: 2020Q2

REPORT INFORMATION
  Report Type: Spontaneous
  Country: US (occurrence: US)
  Receive Date: 20200417
  Receipt Date: 20200417
  Transmission Date: 20200714
  Serious: Yes (Life-Threatening)
  Sender: FDA-Public Use
  Company Number: None

PATIENT
  Age: 77 Year
  Sex: Male
  Weight: 114.76 kg

DRUGS (1)
  1. IBRUTINIB (IBRUTINIB 140MG CAP,ORAL) [Suspect]
     Active Substance: IBRUTINIB
     Route: 048
     Dates: start: 20180220, end: 20180711

REACTIONS (3)
  - Tachycardia [None]
  - Palpitations [None]
  - Ventricular tachycardia [None]

NARRATIVE: CASE EVENT DATE: 20180718
